FAERS Safety Report 7750524-4 (Version None)
Quarter: 2011Q3

REPORT INFORMATION
  Report Type: 
  Country: None (occurrence: None)
  Receive Date: 20110914
  Receipt Date: 20110907
  Transmission Date: 20111222
  Serious: Yes (Hospitalization)
  Sender: FDA-Public Use
  Company Number: BE-EISAI INC-E7389-01493-CLI-BE

PATIENT
  Sex: Female
  Weight: 60 kg

DRUGS (1)
  1. EPIRUBICIN HYDROCHLORIDE [Suspect]
     Indication: BREAST CANCER
     Route: 041
     Dates: start: 20110811

REACTIONS (1)
  - GENERAL PHYSICAL HEALTH DETERIORATION [None]
